FAERS Safety Report 15747160 (Version 2)
Quarter: 2019Q1

REPORT INFORMATION
  Report Type: Spontaneous
  Country: AT (occurrence: AT)
  Receive Date: 20181220
  Receipt Date: 20190110
  Transmission Date: 20190417
  Serious: Yes (Life-Threatening, Hospitalization, Other)
  Sender: FDA-Public Use
  Company Number: AT-DSJP-DSE-2018-152485

PATIENT

DRUGS (1)
  1. LIXIANA [Suspect]
     Active Substance: EDOXABAN TOSYLATE
     Indication: PRODUCT USED FOR UNKNOWN INDICATION
     Dosage: 60 MG, QD
     Route: 048
     Dates: start: 20180903, end: 2018

REACTIONS (3)
  - Pulmonary embolism [Unknown]
  - Thrombosis [Unknown]
  - Menorrhagia [Unknown]

NARRATIVE: CASE EVENT DATE: 201811
